FAERS Safety Report 9685880 (Version 11)
Quarter: 2014Q2

REPORT INFORMATION
  Report Type: Spontaneous
  Country: US (occurrence: US)
  Receive Date: 20131113
  Receipt Date: 20140515
  Transmission Date: 20141212
  Serious: No
  Sender: FDA-Public Use
  Company Number: US-009507513-1310USA014108

PATIENT
  Sex: Female

DRUGS (9)
  1. PEGINTRON [Suspect]
     Indication: HEPATITIS C
     Dosage: 0.5 CC ONCE A WEEK, Q7DAYS
     Route: 058
     Dates: start: 20131025
  2. REBETOL [Suspect]
     Indication: HEPATITIS C
     Dosage: 1000MG,BID, 2 AM 3 PM
     Route: 048
     Dates: start: 20131025
  3. VICTRELIS [Suspect]
     Indication: HEPATITIS C
     Dosage: 2400MG, Q8H, 12 CAPSULES/DAY
     Route: 048
     Dates: start: 20131122
  4. OMEPRAZOLE [Concomitant]
     Dosage: 20 MG, UNKNOWN
  5. ZOLOFT [Concomitant]
     Dosage: 100 MG, UNKNOWN
  6. TYLENOL [Concomitant]
     Dosage: 1000 MG, UNKNOWN
  7. MOTRIN [Concomitant]
     Dosage: 600 MG, UNKNOWN
  8. HYDROCODONE [Concomitant]
     Dosage: 7.5MG/325MG
  9. FIORICET [Concomitant]
     Dosage: 325MG/50MG/40MG

REACTIONS (47)
  - Bone pain [Unknown]
  - Feeling cold [Unknown]
  - Mood swings [Unknown]
  - Contusion [Unknown]
  - Gastrointestinal disorder [Unknown]
  - Lung disorder [Unknown]
  - Pigmentation disorder [Unknown]
  - Crying [Unknown]
  - Anger [Unknown]
  - Red blood cell count decreased [Unknown]
  - Decreased appetite [Unknown]
  - Dysgeusia [Unknown]
  - Thirst [Unknown]
  - Oral fungal infection [Recovered/Resolved]
  - Dysgeusia [Unknown]
  - Red blood cell count decreased [Unknown]
  - Gastrooesophageal reflux disease [Unknown]
  - Candida infection [Unknown]
  - Dysgeusia [Unknown]
  - Blood sodium increased [Unknown]
  - Vision blurred [Unknown]
  - Fatigue [Unknown]
  - Migraine [Unknown]
  - Depression [Unknown]
  - Diarrhoea [Unknown]
  - Decreased appetite [Unknown]
  - Alopecia [Unknown]
  - Nausea [Unknown]
  - White blood cell count decreased [Unknown]
  - Disturbance in attention [Unknown]
  - Weight decreased [Unknown]
  - Leukopenia [Unknown]
  - Haemoglobin decreased [Unknown]
  - Pyrexia [Unknown]
  - Anaemia [Unknown]
  - Vomiting [Unknown]
  - Headache [Unknown]
  - Pyrexia [Unknown]
  - Vomiting [Unknown]
  - Nausea [Unknown]
  - White blood cell count decreased [Unknown]
  - Pyrexia [Unknown]
  - Tremor [Unknown]
  - Insomnia [Unknown]
  - Injection site erythema [Unknown]
  - Alopecia [Unknown]
  - Retching [Unknown]
